FAERS Safety Report 24692535 (Version 1)
Quarter: 2024Q4

REPORT INFORMATION
  Report Type: Report from Study
  Country: US (occurrence: US)
  Receive Date: 20241203
  Receipt Date: 20241203
  Transmission Date: 20250115
  Serious: Yes (Death, Other)
  Sender: BAYER HEALTHCARE LLC
  Company Number: US-BAYER-2024A165550

PATIENT
  Age: 55 Year
  Sex: Male

DRUGS (6)
  1. CHLORPHENIRAMINE [Suspect]
     Active Substance: CHLORPHENIRAMINE
  2. FENTANYL [Suspect]
     Active Substance: FENTANYL
  3. METHAMPHETAMINE [Suspect]
     Active Substance: METHAMPHETAMINE
  4. DEXTROMETHORPHAN [Suspect]
     Active Substance: DEXTROMETHORPHAN
  5. ACETAMINOPHEN [Suspect]
     Active Substance: ACETAMINOPHEN
  6. CHROMIUM\CITRIC ACID MONOHYDRATE\GYMNEMA SYLVESTRE LEAF EXTRACT [Suspect]
     Active Substance: CHROMIUM\CITRIC ACID MONOHYDRATE\GYMNEMA SYLVESTRE LEAF EXTRACT

REACTIONS (1)
  - Accidental overdose [Fatal]

NARRATIVE: CASE EVENT DATE: 20221001
